FAERS Safety Report 13256503 (Version 1)
Quarter: 2017Q1

REPORT INFORMATION
  Report Type: Spontaneous
  Country: FR (occurrence: FR)
  Receive Date: 20170221
  Receipt Date: 20170221
  Transmission Date: 20170428
  Serious: Yes (Other)
  Sender: FDA-Public Use
  Company Number: FR-PFIZER INC-2017064776

PATIENT
  Age: 66 Year
  Sex: Male

DRUGS (4)
  1. ARACYTINE [Suspect]
     Active Substance: CYTARABINE
     Indication: ACUTE MYELOID LEUKAEMIA
     Dosage: 200 MG, DAILY (TWICE DAILY AT 104 MG THE FIRST INTAKE AND 96 MG THE SECOND)
     Route: 042
     Dates: start: 20170120, end: 20170125
  2. ZAVEDOS [Concomitant]
     Active Substance: IDARUBICIN
     Dosage: 15.4 MG, DAILY (8 MG/M2)
     Route: 042
     Dates: start: 20170120, end: 20170124
  3. FASTURTEC [Concomitant]
     Active Substance: RASBURICASE
     Indication: PROPHYLAXIS
     Dosage: UNK
  4. ZYLORIC [Concomitant]
     Active Substance: ALLOPURINOL
     Dosage: UNK

REACTIONS (4)
  - Puncture site oedema [Recovered/Resolved]
  - Induration [Recovered/Resolved]
  - Inflammation [Unknown]
  - Puncture site pain [Recovered/Resolved]

NARRATIVE: CASE EVENT DATE: 20170120
